FAERS Safety Report 4711268-6 (Version None)
Quarter: 2005Q3

REPORT INFORMATION
  Report Type: 
  Country: None (occurrence: None)
  Receive Date: 20050711
  Receipt Date: 20050629
  Transmission Date: 20060218
  Serious: Yes (Other)
  Sender: FDA-Public Use
  Company Number: 05-06-1133

PATIENT
  Age: 80 Year
  Sex: Female

DRUGS (14)
  1. CIPROFLOXACIN [Suspect]
     Indication: OSTEOMYELITIS
     Dosage: 750MG BID ORAL
     Route: 048
  2. CIPROFLOXACIN [Suspect]
     Indication: PATHOLOGICAL FRACTURE
     Dosage: 750MG BID ORAL
     Route: 048
  3. LEVOTHYROXINE SODIUM [Suspect]
     Indication: HYPERTHYROIDISM
     Dosage: 200-125UG QD
  4. DICLOXACILLIN [Concomitant]
  5. HEPARIN [Concomitant]
  6. CALCITRIOL [Concomitant]
  7. PROPRANOLOL [Concomitant]
  8. RANITIDINE [Concomitant]
  9. FUROSEMIDE [Concomitant]
  10. METHENAMINE [Concomitant]
  11. ACETAMINOPHEN [Concomitant]
  12. MORPHINE [Concomitant]
  13. ONDANSETRON [Concomitant]
  14. HIPPURATE [Concomitant]

REACTIONS (7)
  - BLOOD THYROID STIMULATING HORMONE INCREASED [None]
  - DRUG INEFFECTIVE [None]
  - FATIGUE [None]
  - OSTEOMYELITIS [None]
  - PATHOLOGICAL FRACTURE [None]
  - THYROXINE FREE DECREASED [None]
  - TRI-IODOTHYRONINE DECREASED [None]
